FAERS Safety Report 13735502 (Version 3)
Quarter: 2017Q4

REPORT INFORMATION
  Report Type: Spontaneous
  Country: US (occurrence: US)
  Receive Date: 20170710
  Receipt Date: 20171023
  Transmission Date: 20180320
  Serious: No
  Sender: FDA-Public Use
  Company Number: US-PFIZER INC-2017296236

PATIENT
  Age: 86 Year
  Sex: Female
  Weight: 50.8 kg

DRUGS (2)
  1. ESTRING [Suspect]
     Active Substance: ESTRADIOL
     Dosage: UNK
     Dates: start: 20170514, end: 201707
  2. AGRENOX [Concomitant]
     Dosage: 25 MG, 2X/DAY

REACTIONS (3)
  - Vulvovaginal burning sensation [Recovering/Resolving]
  - Dry skin [Unknown]
  - Drug ineffective [Unknown]
